FAERS Safety Report 15000790 (Version 1)
Quarter: 2018Q2

REPORT INFORMATION
  Report Type: Spontaneous
  Country: PH (occurrence: PH)
  Receive Date: 20180612
  Receipt Date: 20180612
  Transmission Date: 20180711
  Serious: Yes (Death, Other)
  Sender: FDA-Public Use
  Company Number: PH-JNJFOC-20180608318

PATIENT

DRUGS (1)
  1. BEDAQUILINE [Suspect]
     Active Substance: BEDAQUILINE
     Indication: TUBERCULOSIS
     Route: 048

REACTIONS (14)
  - Multiple organ dysfunction syndrome [Fatal]
  - Lung abscess [Fatal]
  - Abnormal behaviour [Unknown]
  - Arrhythmia [Fatal]
  - Substance abuse [Unknown]
  - Electrolyte imbalance [Fatal]
  - Bronchiectasis [Fatal]
  - Adverse drug reaction [Unknown]
  - Completed suicide [Fatal]
  - Pulmonary congestion [Fatal]
  - Septic shock [Fatal]
  - Haemoptysis [Fatal]
  - Acute respiratory failure [Fatal]
  - Dizziness [Unknown]
